FAERS Safety Report 5613063-2 (Version None)
Quarter: 2008Q1

REPORT INFORMATION
  Report Type: 
  Country: None (occurrence: None)
  Receive Date: 20080204
  Receipt Date: 20080123
  Transmission Date: 20080703
  Serious: Yes (Other)
  Sender: FDA-Public Use
  Company Number: AU-PFIZER INC-2008008897

PATIENT
  Sex: Male

DRUGS (5)
  1. CHANTIX [Suspect]
  2. NEURONTIN [Concomitant]
     Indication: EPILEPSY
  3. TEGRETOL [Concomitant]
     Indication: EPILEPSY
  4. TRAMADOL HCL [Concomitant]
     Indication: BACK DISORDER
  5. ENDEP [Concomitant]
     Indication: BACK DISORDER

REACTIONS (6)
  - ABNORMAL DREAMS [None]
  - COORDINATION ABNORMAL [None]
  - DIZZINESS [None]
  - DYSARTHRIA [None]
  - HALLUCINATION [None]
  - HEADACHE [None]
